FAERS Safety Report 6634110-5 (Version None)
Quarter: 2010Q1

REPORT INFORMATION
  Report Type: 
  Country: None (occurrence: None)
  Receive Date: 20100225
  Receipt Date: 20090801
  Transmission Date: 20100710
  Serious: Yes (Other)
  Sender: FDA-Public Use
  Company Number: 647860

PATIENT
  Age: 15 Year
  Sex: Female
  Weight: 59 kg

DRUGS (1)
  1. ACCUTANE [Suspect]
     Indication: ACNE
     Dosage: 40 MG DAILY ORAL
     Route: 048
     Dates: start: 19980709, end: 19981212

REACTIONS (11)
  - ANXIETY [None]
  - APHTHOUS STOMATITIS [None]
  - BLOOD GLUCOSE DECREASED [None]
  - COLITIS [None]
  - COLITIS ULCERATIVE [None]
  - CROHN'S DISEASE [None]
  - INFLAMMATORY BOWEL DISEASE [None]
  - IRRITABLE BOWEL SYNDROME [None]
  - MENSTRUATION IRREGULAR [None]
  - MUSCULOSKELETAL STIFFNESS [None]
  - ORAL HERPES [None]
